FAERS Safety Report 21710886 (Version 4)
Quarter: 2023Q1

REPORT INFORMATION
  Report Type: Spontaneous
  Country: US (occurrence: US)
  Receive Date: 20221212
  Receipt Date: 20230323
  Transmission Date: 20230417
  Serious: Yes (Other)
  Sender: FDA-Public Use
  Company Number: US-BRISTOL-MYERS SQUIBB COMPANY-2022-150956

PATIENT
  Age: 78 Year
  Sex: Female

DRUGS (2)
  1. POMALYST [Suspect]
     Active Substance: POMALIDOMIDE
     Indication: Plasma cell myeloma
     Dosage: FREQUENCY:  TAKE 1 CAPSULE WHOLE BY MOUTH WITH WATER, W/ OR W/O FOOD, AT SAME TIME DAILY FOR 21 DAYS
     Route: 048
     Dates: start: 20220810
  2. POMALYST [Suspect]
     Active Substance: POMALIDOMIDE
     Dosage: FREQUENCY:  TAKE 1 CAPSULE WHOLE BY MOUTH WITH WATER, W/ OR W/O FOOD, AT SAME TIME DAILY FOR 21 DAYS
     Route: 048
     Dates: start: 20221008

REACTIONS (3)
  - Product dose omission issue [Unknown]
  - Product supply issue [Unknown]
  - Viral infection [Recovered/Resolved]
